FAERS Safety Report 6191130-5 (Version None)
Quarter: 2009Q2

REPORT INFORMATION
  Report Type: 
  Country: None (occurrence: None)
  Receive Date: 20090515
  Receipt Date: 20090506
  Transmission Date: 20091009
  Serious: Yes (Other)
  Sender: FDA-Public Use
  Company Number: IL-JNJFOC-20090501642

PATIENT
  Age: 46 Year
  Sex: Female

DRUGS (3)
  1. INTELENCE [Suspect]
     Indication: HIV INFECTION
     Route: 048
  2. TRUVADA [Concomitant]
  3. ISENTRESS [Concomitant]

REACTIONS (3)
  - FACE OEDEMA [None]
  - PYREXIA [None]
  - RASH MACULO-PAPULAR [None]
